FAERS Safety Report 8414960-5 (Version None)
Quarter: 2012Q2

REPORT INFORMATION
  Report Type: 
  Country: None (occurrence: None)
  Receive Date: 20120606
  Receipt Date: 20120530
  Transmission Date: 20120825
  Serious: Yes (Death)
  Sender: FDA-Public Use
  Company Number: US-SHIRE-ALL1-2012-01994

PATIENT
  Sex: Male

DRUGS (1)
  1. FOSRENOL [Suspect]
     Indication: HYPERPHOSPHATAEMIA
     Dosage: 1000 MG, OTHER (SIX TIMES A DAY)
     Route: 048
     Dates: start: 20080401

REACTIONS (3)
  - OVERDOSE [None]
  - DISEASE PROGRESSION [None]
  - THERAPY CESSATION [None]
